FAERS Safety Report 7554606-1 (Version None)
Quarter: 2011Q2

REPORT INFORMATION
  Report Type: 
  Country: None (occurrence: None)
  Receive Date: 20110617
  Receipt Date: 20110613
  Transmission Date: 20111010
  Serious: Yes (Other)
  Sender: FDA-Public Use
  Company Number: US-PFIZER INC-2011129099

PATIENT
  Sex: Female
  Weight: 54.4 kg

DRUGS (2)
  1. PREMARIN [Suspect]
     Dosage: UNK
     Route: 067
     Dates: start: 20110301
  2. PREMARIN [Suspect]
     Dosage: UNK
     Route: 067
     Dates: start: 20101001, end: 20100101

REACTIONS (3)
  - LIVER FUNCTION TEST ABNORMAL [None]
  - BREAST MASS [None]
  - GALLBLADDER DISORDER [None]
